FAERS Safety Report 15795357 (Version 9)
Quarter: 2019Q1

REPORT INFORMATION
  Report Type: Spontaneous
  Country: DE (occurrence: DE)
  Receive Date: 20190107
  Receipt Date: 20190205
  Transmission Date: 20190417
  Serious: Yes (Life-Threatening, Other)
  Sender: FDA-Public Use
  Company Number: PHHY2019DE000865

PATIENT
  Age: 74 Year
  Sex: Female
  Weight: 71 kg

DRUGS (5)
  1. ACETYLSALICYLIC ACID [Interacting]
     Active Substance: ASPIRIN
     Indication: PRODUCT USED FOR UNKNOWN INDICATION
     Dosage: UNK
     Route: 065
  2. ACEKAPTON [Concomitant]
     Indication: PRODUCT USED FOR UNKNOWN INDICATION
     Route: 065
  3. PANTOPRAZOLE [Suspect]
     Active Substance: PANTOPRAZOLE
     Indication: PRODUCT USED FOR UNKNOWN INDICATION
     Route: 065
  4. METHOTREXATE. [Suspect]
     Active Substance: METHOTREXATE
     Indication: PSORIASIS
     Dosage: 15 MG, (LOW-DOSE) QW
     Route: 065
  5. HYDROCHLOROTHIAZIDE. [Suspect]
     Active Substance: HYDROCHLOROTHIAZIDE
     Indication: PSORIASIS
     Route: 065

REACTIONS (15)
  - Nephropathy toxic [Unknown]
  - Psoriasis [Unknown]
  - Epidermal necrosis [Unknown]
  - Mucocutaneous rash [Unknown]
  - Bone marrow failure [Unknown]
  - Drug interaction [Unknown]
  - C-reactive protein increased [Unknown]
  - Sepsis [Unknown]
  - Congenital dyskeratosis [Unknown]
  - Skin erosion [Unknown]
  - Toxicity to various agents [Unknown]
  - Thrombocytopenia [Unknown]
  - Procalcitonin increased [Unknown]
  - Granulocytopenia [Unknown]
  - Renal impairment [Unknown]
